FAERS Safety Report 24279325 (Version 1)
Quarter: 2024Q3

REPORT INFORMATION
  Report Type: Spontaneous
  Country: FR (occurrence: FR)
  Receive Date: 20240903
  Receipt Date: 20240903
  Transmission Date: 20241017
  Serious: Yes (Death, Hospitalization)
  Sender: ANI
  Company Number: FR-ANIPHARMA-2024-FR-000149

PATIENT
  Age: 87 Year
  Sex: Male
  Weight: 82 kg

DRUGS (7)
  1. CANDESARTAN CILEXETIL [Suspect]
     Active Substance: CANDESARTAN CILEXETIL
     Indication: Hypertension
     Dosage: 16 MG DAILY
     Route: 048
     Dates: end: 20240714
  2. TAGRISSO [Suspect]
     Active Substance: OSIMERTINIB
     Dosage: 1 DF DAILY
     Route: 048
     Dates: start: 202406, end: 20240714
  3. ESOMEPRAZOLE [Suspect]
     Active Substance: ESOMEPRAZOLE
     Dosage: 20 MG UNK
     Route: 048
     Dates: end: 20240714
  4. XARELTO [Suspect]
     Active Substance: RIVAROXABAN
     Dosage: 20 MG DAILY
     Route: 048
     Dates: end: 20240714
  5. AMLODIPINE [Suspect]
     Active Substance: AMLODIPINE BESYLATE
     Dosage: 5 MG DAILY
     Route: 048
     Dates: end: 20240714
  6. INDAPAMIDE [Suspect]
     Active Substance: INDAPAMIDE
     Dosage: 1.5 MG DAILY
     Route: 048
     Dates: end: 20240714
  7. AMIODARONE [Suspect]
     Active Substance: AMIODARONE
     Dosage: 200 MG DAILY
     Route: 048
     Dates: end: 20240714

REACTIONS (2)
  - Respiratory distress [Fatal]
  - Lung disorder [Fatal]

NARRATIVE: CASE EVENT DATE: 20240713
